FAERS Safety Report 12363980 (Version 1)
Quarter: 2016Q2

REPORT INFORMATION
  Report Type: Spontaneous
  Country: FR (occurrence: FR)
  Receive Date: 20160512
  Receipt Date: 20160512
  Transmission Date: 20160815
  Serious: Yes (Hospitalization)
  Sender: FDA-Public Use
  Company Number: FR-SA-2016SA089503

PATIENT
  Age: 63 Year
  Sex: Male

DRUGS (11)
  1. ESOMEPRAZOLE [Suspect]
     Active Substance: ESOMEPRAZOLE
     Route: 048
     Dates: start: 20160226, end: 20160310
  2. NICOTINE. [Concomitant]
     Active Substance: NICOTINE
     Dates: start: 20160302
  3. INEXIUM [Concomitant]
     Active Substance: ESOMEPRAZOLE
  4. HEPARIN [Suspect]
     Active Substance: HEPARIN SODIUM
     Route: 042
     Dates: start: 20160226, end: 20160310
  5. LOVENOX [Suspect]
     Active Substance: ENOXAPARIN SODIUM
     Route: 058
     Dates: start: 20160310, end: 20160317
  6. TAVANIC [Concomitant]
     Active Substance: LEVOFLOXACIN
     Dates: end: 20160315
  7. CLAFORAN [Concomitant]
     Active Substance: CEFOTAXIME SODIUM
     Dates: end: 20160315
  8. ESOMEPRAZOLE [Suspect]
     Active Substance: ESOMEPRAZOLE
     Route: 048
     Dates: start: 20160311, end: 20160317
  9. ERYTHROMYCIN. [Concomitant]
     Active Substance: ERYTHROMYCIN
     Dates: start: 20160302
  10. TELEBRIX [Concomitant]
     Active Substance: MEGLUMINE IOXITHALAMATE
     Dates: start: 20160306
  11. ROVAMYCINE [Concomitant]
     Active Substance: SPIRAMYCIN

REACTIONS (2)
  - Leukopenia [Unknown]
  - Thrombocytopenia [Unknown]

NARRATIVE: CASE EVENT DATE: 20160318
